FAERS Safety Report 9838842 (Version 1)
Quarter: 2014Q1

REPORT INFORMATION
  Report Type: Spontaneous
  Country: US (occurrence: None)
  Receive Date: 20140117
  Receipt Date: 20140117
  Transmission Date: 20141002
  Serious: Yes (Other)
  Sender: FDA-Public Use
  Company Number: None

PATIENT
  Age: 53 Year
  Sex: Male
  Weight: 76.66 kg

DRUGS (3)
  1. ENBREL [Suspect]
     Route: 058
     Dates: start: 201008, end: 201211
  2. METHOTREXATE 2.5MG? [Suspect]
     Dosage: 8 TABLETS WEEKLY  PO
     Route: 048
     Dates: start: 2008
  3. HYDROXYCHLOROQUINE [Concomitant]

REACTIONS (1)
  - Multiple sclerosis [None]
